FAERS Safety Report 25174420 (Version 3)
Quarter: 2025Q2

REPORT INFORMATION
  Report Type: Report from Study
  Country: US (occurrence: US)
  Receive Date: 20250408
  Receipt Date: 20250603
  Transmission Date: 20250717
  Serious: Yes (Hospitalization)
  Sender: STEMLINE THERAPEUTICS
  Company Number: US-STEMLINE THERAPEUTICS, INC-2025-STML-US001205

PATIENT

DRUGS (3)
  1. ORSERDU [Suspect]
     Active Substance: ELACESTRANT
     Indication: Product used for unknown indication
     Dosage: UNK UNK, DAILY (MG)
     Route: 065
     Dates: start: 20250208, end: 20250307
  2. ORSERDU [Suspect]
     Active Substance: ELACESTRANT
     Dosage: UNK UNK, DAILY (MG)
     Route: 065
     Dates: start: 20250324
  3. ORSERDU [Suspect]
     Active Substance: ELACESTRANT
     Dosage: UNK UNK, DAILY (MG)
     Route: 065
     Dates: start: 20250408, end: 20250530

REACTIONS (3)
  - Limb discomfort [Not Recovered/Not Resolved]
  - Back disorder [Not Recovered/Not Resolved]
  - Malignant neoplasm progression [Unknown]

NARRATIVE: CASE EVENT DATE: 20250101
